FAERS Safety Report 20743067 (Version 1)
Quarter: 2022Q2

REPORT INFORMATION
  Report Type: Spontaneous
  Country: TZ (occurrence: TZ)
  Receive Date: 20220425
  Receipt Date: 20220425
  Transmission Date: 20220721
  Serious: Yes (Other)
  Sender: FDA-Public Use
  Company Number: TZ-CIPLA LTD.-2022TZ02601

PATIENT

DRUGS (3)
  1. ZIDOVUDINE [Suspect]
     Active Substance: ZIDOVUDINE
     Indication: HIV infection WHO clinical stage IV
     Dosage: UNK
     Route: 065
     Dates: start: 20061016
  2. NEVIRAPINE [Suspect]
     Active Substance: NEVIRAPINE
     Indication: HIV infection WHO clinical stage IV
     Dosage: UNK
     Route: 065
     Dates: start: 20061016
  3. LAMIVUDINE [Suspect]
     Active Substance: LAMIVUDINE
     Indication: HIV infection WHO clinical stage IV
     Dosage: UNK
     Route: 065
     Dates: start: 20061016

REACTIONS (1)
  - Virologic failure [Unknown]
